FAERS Safety Report 25543816 (Version 1)
Quarter: 2025Q3

REPORT INFORMATION
  Report Type: Other
  Country: JP (occurrence: JP)
  Receive Date: 20250711
  Receipt Date: 20250711
  Transmission Date: 20251021
  Serious: Yes (Hospitalization)
  Sender: ANI
  Company Number: JP-ANIPHARMA-023501

PATIENT
  Age: 18 Year
  Sex: Female

DRUGS (8)
  1. SULFAMETHOXAZOLE\TRIMETHOPRIM [Suspect]
     Active Substance: SULFAMETHOXAZOLE\TRIMETHOPRIM
     Indication: Intestinal pseudo-obstruction
  2. POTASSIUM [Suspect]
     Active Substance: POTASSIUM
     Indication: Intestinal pseudo-obstruction
  3. UBIDECARENONE [Concomitant]
     Active Substance: UBIDECARENONE
     Indication: Intestinal pseudo-obstruction
  4. TRANILAST [Concomitant]
     Active Substance: TRANILAST
     Indication: Intestinal pseudo-obstruction
  5. ACOTIAMIDE [Concomitant]
     Active Substance: ACOTIAMIDE
     Indication: Intestinal pseudo-obstruction
  6. MOSAPRIDE [Concomitant]
     Active Substance: MOSAPRIDE
     Indication: Intestinal pseudo-obstruction
  7. CLOSTRIDIUM BUTYRICUM [Concomitant]
     Indication: Product used for unknown indication
  8. LEVOCARNITINE [Concomitant]
     Active Substance: LEVOCARNITINE
     Indication: Product used for unknown indication

REACTIONS (1)
  - Lithiasis [Recovering/Resolving]
